FAERS Safety Report 9391190 (Version 1)
Quarter: 2013Q3

REPORT INFORMATION
  Report Type: Spontaneous
  Country: AU (occurrence: AU)
  Receive Date: 20130709
  Receipt Date: 20130709
  Transmission Date: 20140515
  Serious: Yes (Death)
  Sender: FDA-Public Use
  Company Number: AU-B.I. PHARMACEUTICALS,INC./RIDGEFIELD-2013-AU-00810AU

PATIENT
  Sex: Male

DRUGS (8)
  1. PRADAXA [Suspect]
     Indication: ATRIAL FIBRILLATION
  2. PANTOPRAZOLE [Concomitant]
  3. CITALOPRAM [Concomitant]
  4. DIGOXIN [Concomitant]
  5. PROPANOLOL [Concomitant]
  6. FRUSEMIDE [Concomitant]
  7. POTASSIUM [Concomitant]
  8. TIOTROPIUM [Concomitant]

REACTIONS (1)
  - Death [Fatal]
